FAERS Safety Report 5515330-X (Version None)
Quarter: 2007Q4

REPORT INFORMATION
  Report Type: 
  Country: None (occurrence: None)
  Receive Date: 20071113
  Receipt Date: 20071017
  Transmission Date: 20080405
  Serious: No
  Sender: FDA-Public Use
  Company Number: US-BOEHRINGER INGELHEIM PHARMACEUTICALS, INC.-2007-BP-17480BP

PATIENT
  Sex: Female

DRUGS (10)
  1. COMBIVENT [Suspect]
     Indication: CHRONIC OBSTRUCTIVE PULMONARY DISEASE
     Route: 055
     Dates: start: 20070101
  2. COMBIVENT [Suspect]
     Indication: EMPHYSEMA
  3. COMBIVENT [Suspect]
     Indication: ASTHMA
  4. ESTRADIOL [Concomitant]
     Indication: HORMONE REPLACEMENT THERAPY
  5. TRIAMTERENE AND HYDROCHLOROTHIAZIDE [Concomitant]
     Indication: SWELLING
     Route: 048
     Dates: start: 20061201
  6. SPIRIVA [Concomitant]
  7. SEREVENT [Concomitant]
  8. ALBUTEROL [Concomitant]
  9. DUONEB [Concomitant]
     Indication: WHEEZING
  10. ADVAIR DISKUS 100/50 [Concomitant]

REACTIONS (3)
  - ASTHENIA [None]
  - DIZZINESS [None]
  - LOSS OF CONTROL OF LEGS [None]
